FAERS Safety Report 4704375-5 (Version None)
Quarter: 2005Q2

REPORT INFORMATION
  Report Type: 
  Country: None (occurrence: None)
  Receive Date: 20050630
  Receipt Date: 20050630
  Transmission Date: 20051028
  Serious: Yes (Hospitalization)
  Sender: FDA-Public Use
  Company Number: None

PATIENT
  Age: 76 Year
  Sex: Male
  Weight: 65.318 kg

DRUGS (6)
  1. CITUXIMAB [Suspect]
     Indication: OESOPHAGEAL CARCINOMA
     Dosage: 250 MG/M2
     Dates: start: 20050609
  2. CITUXIMAB [Suspect]
     Indication: OESOPHAGEAL CARCINOMA
     Dosage: 250 MG/M2
     Dates: start: 20050620
  3. TAXOL [Suspect]
     Indication: OESOPHAGEAL CARCINOMA
     Dosage: 50 MG/M2
     Dates: start: 20050609
  4. TAXOL [Suspect]
     Indication: OESOPHAGEAL CARCINOMA
     Dosage: 50 MG/M2
     Dates: start: 20050620
  5. CARBOPLATIN [Suspect]
     Indication: OESOPHAGEAL CARCINOMA
     Dosage: AUC 2
     Dates: start: 20050609
  6. CARBOPLATIN [Suspect]
     Indication: OESOPHAGEAL CARCINOMA
     Dosage: AUC 2
     Dates: start: 20050620

REACTIONS (5)
  - ANOREXIA [None]
  - DEHYDRATION [None]
  - FATIGUE [None]
  - RASH [None]
  - WEIGHT DECREASED [None]
